FAERS Safety Report 8175598-0 (Version None)
Quarter: 2012Q1

REPORT INFORMATION
  Report Type: 
  Country: None (occurrence: None)
  Receive Date: 20120301
  Receipt Date: 20120222
  Transmission Date: 20120608
  Serious: No
  Sender: FDA-Public Use
  Company Number: US-BIOGENIDEC-2011BI010598

PATIENT
  Sex: Female

DRUGS (1)
  1. TYSABRI [Suspect]
     Indication: MULTIPLE SCLEROSIS
     Route: 042
     Dates: start: 20100804

REACTIONS (7)
  - PARAESTHESIA [None]
  - DIARRHOEA [None]
  - MULTIPLE SCLEROSIS RELAPSE [None]
  - MALAISE [None]
  - MUSCULAR WEAKNESS [None]
  - DYSPHONIA [None]
  - MUSCLE SPASTICITY [None]
